FAERS Safety Report 5988268-1 (Version None)
Quarter: 2008Q4

REPORT INFORMATION
  Report Type: 
  Country: None (occurrence: None)
  Receive Date: 20081210
  Receipt Date: 20081204
  Transmission Date: 20090506
  Serious: Yes (Other)
  Sender: FDA-Public Use
  Company Number: DE-WYE-G02717408

PATIENT
  Sex: Female

DRUGS (2)
  1. TREVILOR RETARD [Suspect]
     Route: 048
  2. TAMOXIFEN [Concomitant]
     Indication: BREAST CANCER
     Dosage: UNKNOWN
     Route: 048
     Dates: end: 20080101

REACTIONS (2)
  - BLOOD FOLLICLE STIMULATING HORMONE INCREASED [None]
  - BREAST CANCER [None]
